FAERS Safety Report 18994914 (Version 1)
Quarter: 2021Q1

REPORT INFORMATION
  Report Type: Spontaneous
  Country: US (occurrence: US)
  Receive Date: 20210310
  Receipt Date: 20210310
  Transmission Date: 20210420
  Serious: No
  Sender: FDA-Public Use
  Company Number: US-EYEVANCE PHARMACEUTICALS-2020EYE00069

PATIENT
  Sex: Female

DRUGS (6)
  1. PREDNISOLONE ACETATE. [Suspect]
     Active Substance: PREDNISOLONE ACETATE
  2. FLUOROMETHOLONE. [Suspect]
     Active Substance: FLUOROMETHOLONE
  3. DEXAMETHASONE SODIUM PHOSPHATE SOLUTION [Suspect]
     Active Substance: DEXAMETHASONE SODIUM PHOSPHATE
  4. NEVANAC [Suspect]
     Active Substance: NEPAFENAC
  5. VOLTAREN [Suspect]
     Active Substance: DICLOFENAC SODIUM
  6. PREDNISOLONE SODIUM PHOSPHATE. [Suspect]
     Active Substance: PREDNISOLONE SODIUM PHOSPHATE

REACTIONS (1)
  - Treatment failure [Unknown]
